FAERS Safety Report 5389775-5 (Version None)
Quarter: 2007Q3

REPORT INFORMATION
  Report Type: 
  Country: None (occurrence: None)
  Receive Date: 20070717
  Receipt Date: 20070712
  Transmission Date: 20080115
  Serious: Yes (Other)
  Sender: FDA-Public Use
  Company Number: US-MERCK-0707USA01899

PATIENT
  Age: 65 Year
  Sex: Female

DRUGS (3)
  1. FOSAMAX [Suspect]
     Indication: OSTEOPOROSIS
     Route: 048
     Dates: start: 20020101, end: 20070101
  2. PREVACID [Concomitant]
     Route: 065
  3. PREMPRO [Concomitant]
     Route: 065

REACTIONS (1)
  - RESORPTION BONE INCREASED [None]
